FAERS Safety Report 8788230 (Version 1)
Quarter: 2012Q4

REPORT INFORMATION
  Report Type: Report from Study
  Country: US (occurrence: US)
  Receive Date: 20120914
  Receipt Date: 20120914
  Transmission Date: 20130627
  Serious: No
  Sender: FDA-Public Use
  Company Number: US-VERTEX PHARMACEUTICAL INC.-AE-2012-009312

PATIENT
  Age: 57 Year
  Sex: Male
  Weight: 100 kg

DRUGS (7)
  1. INCIVEK [Suspect]
     Indication: HEPATITIS C
     Route: 048
     Dates: start: 20120516
  2. PEGASYS [Concomitant]
     Indication: HEPATITIS C
     Dates: start: 20120516
  3. RIBAVIRIN [Concomitant]
     Indication: HEPATITIS C
     Dates: start: 20120516
  4. PRAVASTATIN [Concomitant]
  5. TAMSULOSIN [Concomitant]
  6. METOPROLOL [Concomitant]
  7. NORCO [Concomitant]

REACTIONS (6)
  - Influenza [Unknown]
  - Cheilitis [Unknown]
  - Dry mouth [Unknown]
  - Fatigue [Unknown]
  - Diarrhoea [Unknown]
  - Nausea [Unknown]
